FAERS Safety Report 19856767 (Version 1)
Quarter: 2021Q3

REPORT INFORMATION
  Report Type: Report from Study
  Country: CN (occurrence: CN)
  Receive Date: 20210920
  Receipt Date: 20210920
  Transmission Date: 20211014
  Serious: Yes (Hospitalization)
  Sender: FDA-Public Use
  Company Number: CN-DSJP-DSE-2021-130680

PATIENT
  Age: 84 Year
  Sex: Male
  Weight: 70 kg

DRUGS (12)
  1. FUROSEMIDE. [Concomitant]
     Active Substance: FUROSEMIDE
     Indication: CARDIAC FAILURE
     Dosage: 20 MG, QD
     Route: 048
     Dates: start: 20210302
  2. CITICOLINE;SODIUM CHLORIDE [Concomitant]
     Indication: CEREBRAL INFARCTION
     Dosage: 0.2 G, TID
     Route: 048
     Dates: start: 20210302
  3. TRADITIONAL CHINESE MEDICINE (TCM) DECOCTION [Concomitant]
     Indication: RENAL FAILURE
     Dosage: 5 G, TID
     Route: 048
     Dates: start: 20210625
  4. DOMPERIDONE [Concomitant]
     Active Substance: DOMPERIDONE
     Indication: CHRONIC GASTRITIS
     Dosage: 10 MG, TID
     Route: 048
     Dates: start: 20210625
  5. EDOXABAN [Suspect]
     Active Substance: EDOXABAN TOSYLATE
     Dosage: 30 MG, QD
     Route: 048
     Dates: start: 20210903
  6. ROSUVASTATIN CALCIUM. [Concomitant]
     Active Substance: ROSUVASTATIN CALCIUM
     Indication: CEREBRAL INFARCTION
     Dosage: 10 MG, QD
     Route: 048
     Dates: start: 20210302
  7. FINASTERIDE. [Concomitant]
     Active Substance: FINASTERIDE
     Indication: BENIGN PROSTATIC HYPERPLASIA
     Dosage: 5 MG, QD
     Route: 048
     Dates: start: 20210302
  8. TRADITIONAL CHINESE MEDICINE (TCM) DECOCTION [Concomitant]
     Indication: CEREBRAL INFARCTION
     Dosage: 0.84 G, TID
     Route: 048
     Dates: start: 20210525
  9. EDOXABAN [Suspect]
     Active Substance: EDOXABAN TOSYLATE
     Indication: ATRIAL FIBRILLATION
     Dosage: 30 MG, QD
     Route: 048
     Dates: start: 20210625, end: 20210828
  10. ILAPRAZOLE [Concomitant]
     Active Substance: ILAPRAZOLE
     Indication: CHRONIC GASTRITIS
     Dosage: 5 MG, QD
     Route: 048
     Dates: start: 20210625
  11. BISOPROLOL FUMARATE. [Concomitant]
     Active Substance: BISOPROLOL FUMARATE
     Indication: HYPERTENSION
     Dosage: 5 MG, QD
     Route: 048
     Dates: start: 20210302
  12. MEDICINAL CHARCOAL [Concomitant]
     Active Substance: ACTIVATED CHARCOAL
     Indication: RENAL FAILURE
     Dosage: 0.9 G, TID
     Route: 048
     Dates: start: 20210302

REACTIONS (2)
  - Haemorrhoids [Recovered/Resolved]
  - Hyponatraemia [Unknown]

NARRATIVE: CASE EVENT DATE: 20210828
